FAERS Safety Report 15717475 (Version 2)
Quarter: 2018Q4

REPORT INFORMATION
  Report Type: Report from Study
  Country: US (occurrence: US)
  Receive Date: 20181213
  Receipt Date: 20181219
  Transmission Date: 20190205
  Serious: Yes (Life-Threatening, Hospitalization, Other)
  Sender: FDA-Public Use
  Company Number: US-BAYER-2018-211503

PATIENT
  Age: 72 Year
  Sex: Female
  Weight: 62.49 kg

DRUGS (7)
  1. ADEMPAS [Suspect]
     Active Substance: RIOCIGUAT
     Indication: PULMONARY ARTERIAL HYPERTENSION
     Dosage: UNK
     Dates: start: 20180717
  2. ADEMPAS [Suspect]
     Active Substance: RIOCIGUAT
     Indication: PULMONARY ARTERIAL HYPERTENSION
     Dosage: 2 MG,UNK
  3. COUMADIN [Concomitant]
     Active Substance: WARFARIN SODIUM
     Dosage: UNK
  4. INFLUENZA VACCINE [Concomitant]
     Active Substance: INFLUENZA VIRUS VACCINE
     Dosage: UNK
  5. ADEMPAS [Suspect]
     Active Substance: RIOCIGUAT
     Indication: PULMONARY ARTERIAL HYPERTENSION
     Dosage: UNK
     Route: 048
  6. ADEMPAS [Suspect]
     Active Substance: RIOCIGUAT
     Indication: PULMONARY ARTERIAL HYPERTENSION
     Dosage: 2 MG, TID
     Route: 048
  7. ADEMPAS [Suspect]
     Active Substance: RIOCIGUAT
     Indication: PULMONARY HYPERTENSION
     Dosage: 1 MG, TID
     Route: 048

REACTIONS (19)
  - Iron deficiency [Unknown]
  - Dependence on oxygen therapy [Unknown]
  - Visual impairment [None]
  - Anaemia [None]
  - Malaise [None]
  - Pain in extremity [None]
  - Headache [None]
  - Hypokalaemia [Unknown]
  - Dyspnoea [None]
  - Gastrointestinal stoma complication [Unknown]
  - Embolism [None]
  - Blood test abnormal [Not Recovered/Not Resolved]
  - Walking aid user [None]
  - Intestinal obstruction [None]
  - Weight decreased [None]
  - Crohn^s disease [None]
  - Renal disorder [None]
  - Hepatitis infectious mononucleosis [None]
  - Blood pressure decreased [Unknown]

NARRATIVE: CASE EVENT DATE: 2018
